FAERS Safety Report 5585898-6 (Version None)
Quarter: 2008Q1

REPORT INFORMATION
  Report Type: 
  Country: None (occurrence: None)
  Receive Date: 20080109
  Receipt Date: 20071231
  Transmission Date: 20080703
  Serious: Yes (Death)
  Sender: FDA-Public Use
  Company Number: AT-BOEHRINGER INGELHEIM PHARMACEUTICALS, INC.-2000-BP-GE289

PATIENT
  Age: 7 Month

DRUGS (1)
  1. ACTIVASE [Suspect]
     Indication: MENINGOCOCCAL SEPSIS
     Route: 042

REACTIONS (1)
  - HAEMORRHAGE INTRACRANIAL [None]
